FAERS Safety Report 9094422 (Version 1)
Quarter: 2013Q1

REPORT INFORMATION
  Report Type: Spontaneous
  Country: US (occurrence: US)
  Receive Date: 20130201
  Receipt Date: 20130201
  Transmission Date: 20140127
  Serious: Yes (Hospitalization, Other)
  Sender: FDA-Public Use
  Company Number: US-ELI_LILLY_AND_COMPANY-US201301008379

PATIENT
  Age: 55 Year
  Sex: Male

DRUGS (1)
  1. AXIRON [Suspect]

REACTIONS (3)
  - Cerebrovascular accident [Recovered/Resolved with Sequelae]
  - VIIth nerve paralysis [Not Recovered/Not Resolved]
  - Tremor [Not Recovered/Not Resolved]
